FAERS Safety Report 7340195-3 (Version None)
Quarter: 2011Q1

REPORT INFORMATION
  Report Type: 
  Country: None (occurrence: None)
  Receive Date: 20110309
  Receipt Date: 20110304
  Transmission Date: 20110831
  Serious: Yes (Death, Hospitalization)
  Sender: FDA-Public Use
  Company Number: DE-BRISTOL-MYERS SQUIBB COMPANY-15207400

PATIENT
  Age: 74 Year
  Sex: Male

DRUGS (15)
  1. RANITIDINE [Concomitant]
     Indication: PREMEDICATION
     Route: 042
  2. CARBOPLATIN [Suspect]
     Indication: NON-SMALL CELL LUNG CANCER
     Dosage: 4TH CYCLE DURATION:43D
     Route: 042
     Dates: start: 20100624, end: 20100716
  3. ZOMETA [Concomitant]
     Indication: METASTASES TO BONE
     Dosage: 04JUN TO 04JUN2010(2DAYS) 04AUG TO 04AUG2010(1D)
     Route: 042
     Dates: start: 20100604, end: 20100804
  4. DIMETINDENE [Concomitant]
     Indication: PREMEDICATION
     Route: 042
  5. TAXOL [Suspect]
     Indication: NON-SMALL CELL LUNG CANCER
     Dosage: 312 MG BATCH NO.: OA58285, 9A4610 4TH CYCLE:DURATION:43D
     Route: 042
     Dates: start: 20100624, end: 20100805
  6. CAPROS [Concomitant]
     Indication: PAIN
     Route: 048
     Dates: start: 20100401
  7. FLUCONAZOLE [Concomitant]
     Indication: ORAL CANDIDIASIS
     Route: 048
  8. PREDNISOLONE [Concomitant]
     Indication: DYSPNOEA
     Route: 048
  9. TERBUTALINE SULFATE [Concomitant]
     Indication: DYSPNOEA
     Route: 048
  10. DEXAMETHASONE [Concomitant]
     Indication: PREMEDICATION
     Route: 042
  11. UNACID [Concomitant]
     Indication: PNEUMONIA
     Route: 048
     Dates: start: 20100331, end: 20100413
  12. TIOTROPIUM BROMIDE [Concomitant]
     Indication: DYSPHAGIA
     Route: 055
  13. GRANISETRON HCL [Concomitant]
     Indication: PREMEDICATION
     Route: 042
  14. NOVAMIN [Concomitant]
     Indication: PAIN
     Dosage: 1 DF=1 GTT
     Route: 048
     Dates: start: 20100401
  15. TAVANIC [Concomitant]
     Indication: INFECTION PROPHYLAXIS
     Route: 048
     Dates: start: 20100426, end: 20100512

REACTIONS (2)
  - GENERAL PHYSICAL HEALTH DETERIORATION [None]
  - NEOPLASM MALIGNANT [None]
